FAERS Safety Report 18159429 (Version 2)
Quarter: 2020Q3

REPORT INFORMATION
  Report Type: Report from Study
  Country: JP (occurrence: JP)
  Receive Date: 20200817
  Receipt Date: 20200827
  Transmission Date: 20201103
  Serious: Yes (Life-Threatening, Other)
  Sender: FDA-Public Use
  Company Number: JP-BRISTOL-MYERS SQUIBB COMPANY-BMS-2020-066107

PATIENT
  Age: 58 Year
  Sex: Female
  Weight: 47.7 kg

DRUGS (3)
  1. CISPLATIN. [Concomitant]
     Active Substance: CISPLATIN
     Indication: OESOPHAGEAL CARCINOMA
     Dosage: 75 MILLIGRAM/SQ. METER
     Route: 065
     Dates: start: 20191119
  2. FLUOROURACIL [FLUOROURACIL SODIUM] [Concomitant]
     Indication: OESOPHAGEAL CARCINOMA
     Dosage: 1000 MG/M2, DAY1?DAY4
     Route: 065
     Dates: start: 20191119
  3. NIVOLUMAB [Suspect]
     Active Substance: NIVOLUMAB
     Indication: OESOPHAGEAL CARCINOMA
     Dosage: 240 MILLIGRAM
     Route: 041
     Dates: start: 20191119

REACTIONS (2)
  - Tracheal stenosis [Not Recovered/Not Resolved]
  - Cardio-respiratory arrest [Unknown]

NARRATIVE: CASE EVENT DATE: 20200814
